FAERS Safety Report 6416973-1 (Version None)
Quarter: 2009Q4

REPORT INFORMATION
  Report Type: 
  Country: None (occurrence: None)
  Receive Date: 20091023
  Receipt Date: 20090417
  Transmission Date: 20100525
  Serious: Yes (Other)
  Sender: FDA-Public Use
  Company Number: 8045285

PATIENT
  Age: 35 Year
  Sex: Female

DRUGS (4)
  1. KEPPRA [Suspect]
     Indication: EPILEPSY
     Dosage: 250 MG 2/D PO
     Route: 048
     Dates: start: 20090309
  2. TEMODAL [Concomitant]
  3. PHENYTOIN [Concomitant]
  4. VALPROATE SODIUM [Concomitant]

REACTIONS (1)
  - LEUKOPENIA [None]
